FAERS Safety Report 14981845 (Version 1)
Quarter: 2018Q2

REPORT INFORMATION
  Report Type: Report from Study
  Country: None (occurrence: US)
  Receive Date: 20180607
  Receipt Date: 20180607
  Transmission Date: 20180711
  Serious: Yes (Hospitalization)
  Sender: FDA-Public Use
  Company Number: US-ABBVIE-18K-163-2354052-00

PATIENT
  Age: 59 Year
  Sex: Male
  Weight: 75.82 kg

DRUGS (2)
  1. HUMIRA [Suspect]
     Active Substance: ADALIMUMAB
     Indication: COLITIS ULCERATIVE
     Route: 058
     Dates: start: 201611
  2. DOXYCYCLINE. [Suspect]
     Active Substance: DOXYCYCLINE
     Indication: PRODUCT USED FOR UNKNOWN INDICATION
     Route: 065

REACTIONS (15)
  - Dizziness [Recovered/Resolved]
  - Hypertension [Recovered/Resolved]
  - Dehydration [Recovered/Resolved]
  - Erythema [Recovered/Resolved]
  - Rash papular [Not Recovered/Not Resolved]
  - Feeding disorder [Recovered/Resolved]
  - Oral candidiasis [Recovered/Resolved]
  - Erythema [Recovering/Resolving]
  - Heart rate increased [Recovered/Resolved]
  - Fluid intake reduced [Recovered/Resolved]
  - Sinusitis [Recovered/Resolved]
  - Oral pain [Unknown]
  - Dermatitis allergic [Recovered/Resolved]
  - Skin bacterial infection [Recovered/Resolved]
  - Drug hypersensitivity [Recovered/Resolved]

NARRATIVE: CASE EVENT DATE: 2018
